FAERS Safety Report 15899034 (Version 2)
Quarter: 2019Q3

REPORT INFORMATION
  Report Type: Spontaneous
  Country: CA (occurrence: CA)
  Receive Date: 20190201
  Receipt Date: 20190927
  Transmission Date: 20191004
  Serious: Yes (Other)
  Sender: FDA-Public Use
  Company Number: CA-GLAXOSMITHKLINE-CA2018127162

PATIENT
  Age: 65 Year
  Sex: Male
  Weight: 108 kg

DRUGS (5)
  1. NICOTINE. [Suspect]
     Active Substance: NICOTINE
     Indication: SMOKING CESSATION THERAPY
     Dosage: 1 GUM AT A TIME. A STRIP A DAY. ABOUT 15 PIECES A DAY.
     Route: 048
     Dates: start: 20180518, end: 20180520
  2. NICOTINE. [Suspect]
     Active Substance: NICOTINE
     Dosage: UNK
     Route: 048
     Dates: start: 20180619, end: 2018
  3. GABAPENTIN. [Concomitant]
     Active Substance: GABAPENTIN
     Indication: PAIN
     Dosage: 400 MG, TID
     Route: 065
     Dates: start: 20180201
  4. WELLBUTRIN [Concomitant]
     Active Substance: BUPROPION HYDROCHLORIDE
     Indication: SMOKING CESSATION THERAPY
     Dosage: 150 MG, QD
     Route: 065
  5. MS CONTIN [Concomitant]
     Active Substance: MORPHINE SULFATE
     Indication: PAIN
     Dosage: 3 PER DAY
     Route: 065
     Dates: start: 20180412

REACTIONS (3)
  - Chemical burn [Recovered/Resolved with Sequelae]
  - Lip haemorrhage [Not Recovered/Not Resolved]
  - Suspected product contamination [Unknown]

NARRATIVE: CASE EVENT DATE: 2018
